FAERS Safety Report 9249284 (Version 1)
Quarter: 2013Q2

REPORT INFORMATION
  Report Type: Spontaneous
  Country: CA (occurrence: CA)
  Receive Date: 20130423
  Receipt Date: 20130423
  Transmission Date: 20140414
  Serious: Yes (Death)
  Sender: FDA-Public Use
  Company Number: CA-009507513-1304CAN013316

PATIENT
  Age: 4 Year
  Sex: Male

DRUGS (5)
  1. CASPOFUNGIN ACETATE [Suspect]
     Indication: BURKITT^S LYMPHOMA STAGE IV
     Dosage: UNK
  2. CYCLOPHOSPHAMIDE [Concomitant]
  3. VINCRISTINE SULFATE [Concomitant]
  4. PREDNISONE [Concomitant]
  5. RITUXIMAB [Concomitant]

REACTIONS (1)
  - Drug ineffective [Fatal]
